FAERS Safety Report 21214520 (Version 1)
Quarter: 2022Q3

REPORT INFORMATION
  Report Type: Spontaneous
  Country: IN (occurrence: IN)
  Receive Date: 20220816
  Receipt Date: 20220816
  Transmission Date: 20221026
  Serious: Yes (Hospitalization, Other)
  Sender: FDA-Public Use
  Company Number: IN-LUPIN PHARMACEUTICALS INC.-2022-10262

PATIENT
  Age: 70 Year
  Sex: Male

DRUGS (2)
  1. BUDESONIDE [Suspect]
     Active Substance: BUDESONIDE
     Indication: COVID-19
     Dosage: 0.5 MG, TID, NEBULISATION
  2. METHYLPREDNISOLONE [Suspect]
     Active Substance: METHYLPREDNISOLONE
     Indication: COVID-19
     Dosage: 40 MG, QD
     Route: 065

REACTIONS (3)
  - Diverticular perforation [Unknown]
  - Diverticulum intestinal [Unknown]
  - Off label use [Unknown]
